FAERS Safety Report 5118412-X (Version None)
Quarter: 2006Q4

REPORT INFORMATION
  Report Type: 
  Country: None (occurrence: None)
  Receive Date: 20061002
  Receipt Date: 20060920
  Transmission Date: 20070319
  Serious: Yes (Hospitalization, Other)
  Sender: FDA-Public Use
  Company Number: US-NOVOPROD-257109

PATIENT
  Age: 66 Year
  Sex: Female
  Weight: 73 kg

DRUGS (1)
  1. VAGIFEM [Suspect]
     Indication: VULVOVAGINAL DRYNESS
     Dosage: 1 TAB, BIW
     Route: 067
     Dates: start: 20060401, end: 20060916

REACTIONS (3)
  - ATRIAL FIBRILLATION [None]
  - EMBOLISM [None]
  - HEART RATE DECREASED [None]
